FAERS Safety Report 20390333 (Version 1)
Quarter: 2022Q1

REPORT INFORMATION
  Report Type: Spontaneous
  Country: GB (occurrence: GB)
  Receive Date: 20220128
  Receipt Date: 20220128
  Transmission Date: 20220423
  Serious: Yes (Death, Life-Threatening, Hospitalization, Disabling, Other)
  Sender: FDA-Public Use
  Company Number: GB-GALDERMA-GB2021020186

PATIENT
  Age: 76 Year
  Sex: Male

DRUGS (41)
  1. DOXYCYCLINE [Interacting]
     Active Substance: DOXYCYCLINE
     Indication: Product used for unknown indication
     Dosage: 1 DOSAGE FORM
     Route: 065
  2. CLARITHROMYCIN [Interacting]
     Active Substance: CLARITHROMYCIN
     Indication: Lower respiratory tract infection
  3. CLARITHROMYCIN [Interacting]
     Active Substance: CLARITHROMYCIN
     Indication: Mediastinitis
     Dosage: 1000 MILLIGRAM DAILY; 500 MILLIGRAM, BID
     Route: 042
     Dates: start: 20180127, end: 20180131
  4. CLARITHROMYCIN [Interacting]
     Active Substance: CLARITHROMYCIN
     Indication: Pneumonia
  5. TACROLIMUS [Concomitant]
     Active Substance: TACROLIMUS
     Indication: Prophylaxis against transplant rejection
     Dosage: 4 MILLIGRAM DAILY; 2 MILLIGRAM, BID
     Route: 048
     Dates: start: 20180128
  6. TACROLIMUS [Concomitant]
     Active Substance: TACROLIMUS
     Indication: Renal transplant
     Dosage: 30 MILLIGRAM DAILY; 15 MILLIGRAM, BID
     Route: 048
     Dates: start: 20180127
  7. TACROLIMUS [Concomitant]
     Active Substance: TACROLIMUS
     Dosage: 3 MILLIGRAM DAILY; 1.5 MILLIGRAM, BID
     Route: 048
     Dates: start: 20100127, end: 20180130
  8. TACROLIMUS [Concomitant]
     Active Substance: TACROLIMUS
     Dosage: 4 MILLIGRAM DAILY; 4 MILLIGRAM, QD
     Route: 048
     Dates: start: 20180128
  9. ALFACALCIDOL [Concomitant]
     Active Substance: ALFACALCIDOL
     Indication: Product used for unknown indication
     Dosage: 500 NANOGRAM DAILY; 500 NANOGRAM, QD
     Route: 048
  10. ALLOPURINOL [Concomitant]
     Active Substance: ALLOPURINOL
     Indication: Product used for unknown indication
     Dosage: 100 MILLIGRAM DAILY; 100 MILLIGRAM, QD
     Route: 048
  11. BETAHISTINE [Concomitant]
     Active Substance: BETAHISTINE
     Indication: Product used for unknown indication
     Dosage: 8 MILLIGRAM, MONTHLY
  12. BETAHISTINE [Concomitant]
     Active Substance: BETAHISTINE
     Dosage: 8 MILLIGRAM DAILY; 8 MILLIGRAM, QD, EVERY MORNING
     Route: 048
  13. BISOPROLOL [Concomitant]
     Active Substance: BISOPROLOL
     Indication: Product used for unknown indication
     Route: 065
  14. CEFUROXIME [Concomitant]
     Active Substance: CEFUROXIME
     Indication: Product used for unknown indication
     Route: 065
     Dates: start: 20180131
  15. CHOLECALCIFEROL [Concomitant]
     Active Substance: CHOLECALCIFEROL
     Indication: Product used for unknown indication
     Dosage: 20 NANOGRAM, MONTHLY
     Route: 048
  16. CHOLECALCIFEROL [Concomitant]
     Active Substance: CHOLECALCIFEROL
     Dosage: 20 NANOGRAM DAILY; 20 NANOGRAM, MORNING, QD
     Route: 048
  17. DEXTROSE [Concomitant]
     Active Substance: DEXTROSE
     Indication: Product used for unknown indication
     Route: 065
     Dates: start: 20180130
  18. ENVARSUS XR [Concomitant]
     Active Substance: TACROLIMUS
     Indication: Renal transplant
  19. ENVARSUS XR [Concomitant]
     Active Substance: TACROLIMUS
     Indication: Prophylaxis against transplant rejection
     Dosage: 3 MILLIGRAM DAILY; 3 MILLIGRAM, QD
     Route: 048
     Dates: start: 20180127, end: 20180131
  20. EPLERENONE [Concomitant]
     Active Substance: EPLERENONE
     Indication: Product used for unknown indication
     Dosage: 25 MILLIGRAM DAILY; 25 MILLIGRAM, QD AT MORNING
     Dates: end: 20180130
  21. EPLERENONE [Concomitant]
     Active Substance: EPLERENONE
     Dosage: 25 MILLIGRAM, MONTHLY
     Dates: end: 20180130
  22. FUROSEMIDE [Concomitant]
     Active Substance: FUROSEMIDE
     Indication: Product used for unknown indication
     Dosage: 120 MILLIGRAM DAILY; 80MG MORNING, 40MG 12PM, UNIT DOSE: 120 MG
     Route: 048
  23. FUROSEMIDE [Concomitant]
     Active Substance: FUROSEMIDE
     Dosage: 40 MG, UNK 12 PM
     Route: 048
  24. FUROSEMIDE [Concomitant]
     Active Substance: FUROSEMIDE
     Dosage: 80 MILLIGRAM DAILY; 80 MILLIGRAM, QD
     Route: 048
     Dates: end: 20180130
  25. GLICLAZIDE [Concomitant]
     Active Substance: GLICLAZIDE
     Indication: Product used for unknown indication
     Dosage: 40 MILLIGRAM, MONTHLY
     Route: 048
  26. GLICLAZIDE [Concomitant]
     Active Substance: GLICLAZIDE
     Dosage: 40 MILLIGRAM DAILY; 40 MILLIGRAM, QD
     Route: 048
  27. GLUCAGON [Concomitant]
     Active Substance: GLUCAGON
     Indication: Product used for unknown indication
     Route: 030
     Dates: start: 20180130
  28. DEXTROSE [Concomitant]
     Active Substance: DEXTROSE
     Indication: Product used for unknown indication
     Dosage: GLUCOGEL
     Route: 065
     Dates: start: 20180130
  29. DEXTROSE [Concomitant]
     Active Substance: DEXTROSE
     Indication: Product used for unknown indication
     Route: 065
  30. NITROGLYCERIN [Concomitant]
     Active Substance: NITROGLYCERIN
     Indication: Product used for unknown indication
     Route: 065
  31. HYDROCORTISONE [Concomitant]
     Active Substance: HYDROCORTISONE
     Indication: Product used for unknown indication
     Dosage: 450 MILLIGRAM DAILY; 150 MILLIGRAM, TID
     Route: 042
     Dates: start: 20180201
  32. HYDROCORTISONE [Concomitant]
     Active Substance: HYDROCORTISONE
     Dosage: 150 MILLIGRAM DAILY; 50 MILLIGRAM, TID
     Route: 042
     Dates: start: 20180201
  33. NITROGLYCERIN [Concomitant]
     Active Substance: NITROGLYCERIN
     Indication: Product used for unknown indication
     Route: 065
  34. OMEPRAZOLE [Concomitant]
     Active Substance: OMEPRAZOLE
     Indication: Duodenal ulcer
     Dosage: 20 MG, MONTHLY
     Route: 048
  35. OMEPRAZOLE [Concomitant]
     Active Substance: OMEPRAZOLE
     Dosage: 20 MILLIGRAM DAILY; 20 MILLIGRAM, QD, MORNING
     Route: 048
  36. PREDNISOLONE [Concomitant]
     Active Substance: PREDNISOLONE
     Indication: Product used for unknown indication
     Dosage: INCREASE DOSE TO 10 MG FOR 5 DAYS
  37. PREDNISOLONE [Concomitant]
     Active Substance: PREDNISOLONE
     Dosage: 5 MILLIGRAM, MONTHLY
     Route: 048
     Dates: start: 20180127
  38. PREDNISOLONE [Concomitant]
     Active Substance: PREDNISOLONE
     Dosage: 5 MILLIGRAM DAILY; 5 MILLIGRAM, QD
     Route: 048
     Dates: start: 20180127
  39. ALBUTEROL [Concomitant]
     Active Substance: ALBUTEROL
     Indication: Product used for unknown indication
     Route: 065
  40. SENNA [Concomitant]
     Active Substance: SENNA LEAF\SENNOSIDES\SENNOSIDES A AND B
     Indication: Product used for unknown indication
     Dosage: 15 MILLIGRAM DAILY; 15 MILLIGRAM, QD EVERY NIGHT O/A
     Route: 048
  41. SENNOSIDES A AND B [Concomitant]
     Active Substance: SENNOSIDES A AND B
     Indication: Product used for unknown indication
     Route: 065

REACTIONS (33)
  - Oesophageal carcinoma [Fatal]
  - Myocardial ischaemia [Fatal]
  - Acute kidney injury [Fatal]
  - Cardiac failure congestive [Fatal]
  - Oesophageal perforation [Fatal]
  - Multimorbidity [Fatal]
  - Swelling [Fatal]
  - Drug level increased [Fatal]
  - Pneumonia [Fatal]
  - Drug interaction [Fatal]
  - Sepsis [Fatal]
  - Immunosuppressant drug level increased [Fatal]
  - Dyspnoea [Fatal]
  - Lower respiratory tract infection [Unknown]
  - Inflammatory marker increased [Unknown]
  - Productive cough [Unknown]
  - Rales [Unknown]
  - Ascites [Unknown]
  - Lung consolidation [Unknown]
  - Haemoptysis [Unknown]
  - Soft tissue mass [Unknown]
  - Toxicity to various agents [Not Recovered/Not Resolved]
  - Superinfection [Unknown]
  - Pleural effusion [Unknown]
  - Hypoglycaemia [Unknown]
  - Cardiomegaly [Unknown]
  - Transplant failure [Not Recovered/Not Resolved]
  - Rash [Unknown]
  - Dysphagia [Unknown]
  - Pyrexia [Unknown]
  - Renal impairment [Unknown]
  - Cough [Unknown]
  - Malaise [Unknown]

NARRATIVE: CASE EVENT DATE: 20180118
